FAERS Safety Report 9103112 (Version 1)
Quarter: 2013Q1

REPORT INFORMATION
  Report Type: Spontaneous
  Country: ES (occurrence: None)
  Receive Date: 20130125
  Receipt Date: 20130125
  Transmission Date: 20140127
  Serious: Yes (Other)
  Sender: FDA-Public Use
  Company Number: VA;_01296_2013

PATIENT
  Age: 37 Year
  Sex: Female

DRUGS (1)
  1. PARLODEL (PARLODEL-BROMOCRIPTINE MESILATE) [Suspect]
     Indication: PROLACTINOMA
     Route: 048
     Dates: start: 2012

REACTIONS (3)
  - Prolactinoma [None]
  - Condition aggravated [None]
  - Drug ineffective [None]
